FAERS Safety Report 16058439 (Version 2)
Quarter: 2019Q2

REPORT INFORMATION
  Report Type: Spontaneous
  Country: JP (occurrence: JP)
  Receive Date: 20190311
  Receipt Date: 20190405
  Transmission Date: 20190711
  Serious: Yes (Death)
  Sender: FDA-Public Use
  Company Number: JP-NOVOPROD-650399

PATIENT
  Age: 69 Year
  Sex: Male

DRUGS (2)
  1. NOVOSEVEN [Suspect]
     Active Substance: COAGULATION FACTOR VIIA RECOMBINANT HUMAN
     Indication: HAEMORRHAGE INTRACRANIAL
     Dosage: 4 VIALS EVERY 3 HOURS
     Route: 042
     Dates: start: 20190228
  2. NOVOSEVEN [Suspect]
     Active Substance: COAGULATION FACTOR VIIA RECOMBINANT HUMAN
     Indication: FACTOR VIII DEFICIENCY
     Dosage: 6 VIALS EVERY 3 HOURS
     Route: 042
     Dates: start: 20190227, end: 20190227

REACTIONS (1)
  - Death [Fatal]
